FAERS Safety Report 8547194-4 (Version None)
Quarter: 2012Q3

REPORT INFORMATION
  Report Type: 
  Country: None (occurrence: None)
  Receive Date: 20120727
  Receipt Date: 20120227
  Transmission Date: 20120928
  Serious: No
  Sender: FDA-Public Use
  Company Number: US-ASTRAZENECA-2012SE13375

PATIENT
  Sex: Female

DRUGS (7)
  1. GEMFIBROZIL [Concomitant]
  2. SEROQUEL [Suspect]
     Indication: SLEEP DISORDER
     Route: 048
  3. AMLODIPINE [Concomitant]
  4. KLOR-CON [Concomitant]
  5. CITALOPRAM HYDROBROMIDE [Concomitant]
  6. XANAX [Concomitant]
  7. HYDROCHLOROTHIAZIDE [Concomitant]

REACTIONS (2)
  - OFF LABEL USE [None]
  - NASOPHARYNGITIS [None]
